FAERS Safety Report 7067571-0 (Version None)
Quarter: 2010Q4

REPORT INFORMATION
  Report Type: 
  Country: None (occurrence: None)
  Receive Date: 20101028
  Receipt Date: 20101026
  Transmission Date: 20110411
  Serious: Yes (Hospitalization)
  Sender: FDA-Public Use
  Company Number: IT-BRISTOL-MYERS SQUIBB COMPANY-15353287

PATIENT
  Age: 87 Year
  Sex: Female

DRUGS (5)
  1. COUMADIN [Suspect]
     Indication: PROPHYLAXIS
     Dosage: 1DF=1 POSOLOGIC UNIT.DRUG INTERUPTED ON 12OCT2010 AND REINTRODUCED
     Dates: start: 20100101
  2. LANOXIN [Suspect]
     Dosage: LANOXIN 0.25MG TABS.1DF=1 POSOLOGIC UNIT/DAY
     Route: 048
     Dates: start: 20100101, end: 20101012
  3. VERAPAMIL [Concomitant]
  4. FLUSS 40 [Concomitant]
     Dosage: 1DF=2POSOLOGIC UNIT
  5. CALCIFEDIOL [Concomitant]
     Dosage: DIDROGYL(CALCIFEDIOL)1.5MG/10ML
     Route: 048

REACTIONS (2)
  - INTERNATIONAL NORMALISED RATIO INCREASED [None]
  - RENAL FAILURE ACUTE [None]
